FAERS Safety Report 24001462 (Version 3)
Quarter: 2024Q3

REPORT INFORMATION
  Report Type: Spontaneous
  Country: ES (occurrence: ES)
  Receive Date: 20240621
  Receipt Date: 20240709
  Transmission Date: 20241017
  Serious: Yes (Other)
  Sender: BAUSCH AND LOMB
  Company Number: ES-BAUSCH-BL-2024-009196

PATIENT
  Age: 72 Year
  Sex: Female

DRUGS (3)
  1. IMIQUIMOD [Suspect]
     Active Substance: IMIQUIMOD
     Indication: Extramammary Paget^s disease
     Dosage: FIVE TIMES A WEEK
     Route: 061
  2. AMELUZ [Concomitant]
     Active Substance: AMINOLEVULINIC ACID HYDROCHLORIDE
     Indication: Extramammary Paget^s disease
  3. METHYL AMINOLEVULINATE HYDROCHLORIDE [Concomitant]
     Active Substance: METHYL AMINOLEVULINATE HYDROCHLORIDE
     Indication: Extramammary Paget^s disease

REACTIONS (3)
  - Disease progression [Not Recovered/Not Resolved]
  - Drug ineffective for unapproved indication [Unknown]
  - Off label use [Unknown]
